FAERS Safety Report 8756200 (Version 1)
Quarter: 2012Q4

REPORT INFORMATION
  Report Type: 
  Country: IT (occurrence: IT)
  Receive Date: 20120828
  Receipt Date: 20120828
  Transmission Date: 20130627
  Serious: Yes (Hospitalization)
  Sender: FDA-Public Use
  Company Number: IT-JNJFOC-20120812562

PATIENT
  Age: 55 Year
  Sex: Male

DRUGS (3)
  1. PREZISTA [Suspect]
     Indication: ACQUIRED IMMUNODEFICIENCY SYNDROME
     Route: 048
     Dates: start: 20120327, end: 20120814
  2. TRUVADA [Concomitant]
     Indication: ACQUIRED IMMUNODEFICIENCY SYNDROME
     Route: 048
     Dates: start: 20120327, end: 20120814
  3. NORVIR [Concomitant]
     Indication: ACQUIRED IMMUNODEFICIENCY SYNDROME
     Route: 048
     Dates: start: 20120327, end: 20120814

REACTIONS (2)
  - Thrombocytopenia [Recovering/Resolving]
  - Gastrointestinal haemorrhage [Recovering/Resolving]
